FAERS Safety Report 7748035-5 (Version None)
Quarter: 2011Q3

REPORT INFORMATION
  Report Type: 
  Country: None (occurrence: None)
  Receive Date: 20110913
  Receipt Date: 20110809
  Transmission Date: 20111222
  Serious: No
  Sender: FDA-Public Use
  Company Number: US-ALLERGAN-1110727US

PATIENT
  Age: 74 Year
  Sex: Female

DRUGS (2)
  1. REFRESH TEARS [Concomitant]
     Indication: PRODUCT USED FOR UNKNOWN INDICATION
  2. LATISSE [Suspect]
     Indication: MADAROSIS
     Dosage: 1 GTT, QHS
     Dates: start: 20110803

REACTIONS (2)
  - THERAPEUTIC RESPONSE UNEXPECTED [None]
  - IRIS DISORDER [None]
